FAERS Safety Report 6641901-3 (Version None)
Quarter: 2010Q1

REPORT INFORMATION
  Report Type: 
  Country: None (occurrence: None)
  Receive Date: 20100319
  Receipt Date: 20100310
  Transmission Date: 20100710
  Serious: Yes (Hospitalization)
  Sender: FDA-Public Use
  Company Number: JP-JNJFOC-20100302260

PATIENT
  Sex: Female
  Weight: 44 kg

DRUGS (15)
  1. REMICADE [Suspect]
     Indication: RHEUMATOID ARTHRITIS
     Route: 042
  2. REMICADE [Suspect]
     Dosage: 1 INFUSION ON AN UNSPECIFIED DATE
     Route: 042
  3. REMICADE [Suspect]
     Dosage: 3 INFUSIONS ON UNSPECIFIED DATES
     Route: 042
  4. RHEUMATREX [Concomitant]
     Indication: RHEUMATOID ARTHRITIS
     Route: 048
  5. ACTEMRA [Concomitant]
     Indication: RHEUMATOID ARTHRITIS
     Dosage: ROUTE: DR
  6. CALONAL [Concomitant]
     Indication: PREMEDICATION
     Route: 048
  7. RESTAMIN [Concomitant]
     Indication: PREMEDICATION
     Route: 048
  8. SOLU-CORTEF [Concomitant]
     Indication: PREMEDICATION
     Route: 042
  9. BONALON [Concomitant]
     Indication: OSTEOPOROSIS
     Route: 048
  10. PREDNISOLONE [Concomitant]
     Indication: RHEUMATOID ARTHRITIS
     Route: 048
  11. CELECOX [Concomitant]
     Indication: RHEUMATOID ARTHRITIS
     Route: 048
  12. MUCODYNE [Concomitant]
     Indication: GASTRITIS
     Route: 048
  13. MUCOSTA [Concomitant]
     Indication: GASTRITIS
     Route: 048
  14. FOLIC ACID [Concomitant]
     Indication: PROPHYLAXIS
     Route: 048
  15. FAMOTIDINE [Concomitant]
     Indication: GASTRITIS
     Route: 048

REACTIONS (3)
  - BLOOD PRESSURE DECREASED [None]
  - INFUSION RELATED REACTION [None]
  - SHOCK [None]
